FAERS Safety Report 10442000 (Version 1)
Quarter: 2014Q3

REPORT INFORMATION
  Report Type: Spontaneous
  Country: DK (occurrence: DK)
  Receive Date: 20140909
  Receipt Date: 20140909
  Transmission Date: 20150326
  Serious: Yes (Other)
  Sender: FDA-Public Use
  Company Number: DK-GLAXOSMITHKLINE-B1030940A

PATIENT
  Sex: Male

DRUGS (3)
  1. MADOPAR [Concomitant]
     Active Substance: BENSERAZIDE HYDROCHLORIDE\LEVODOPA
     Indication: PARKINSON^S DISEASE
     Dates: start: 20111122
  2. AZILECT [Concomitant]
     Active Substance: RASAGILINE MESYLATE
     Indication: PARKINSON^S DISEASE
     Dates: start: 20110310
  3. REQUIP [Suspect]
     Active Substance: ROPINIROLE HYDROCHLORIDE
     Indication: PARKINSON^S DISEASE
     Dosage: 4MG SEE DOSAGE TEXT
     Route: 065
     Dates: start: 20110310

REACTIONS (7)
  - Drug ineffective [Unknown]
  - Ulcerative keratitis [Unknown]
  - Fall [Unknown]
  - Fatigue [Unknown]
  - Peripheral swelling [Unknown]
  - Balance disorder [Unknown]
  - Insomnia [Unknown]
